FAERS Safety Report 5281761-9 (Version None)
Quarter: 2007Q1

REPORT INFORMATION
  Report Type: 
  Country: None (occurrence: None)
  Receive Date: 20070330
  Receipt Date: 20070322
  Transmission Date: 20070707
  Serious: Yes (Hospitalization)
  Sender: FDA-Public Use
  Company Number: FR-GLAXOSMITHKLINE-B0463349A

PATIENT
  Age: 36 Year
  Sex: Male

DRUGS (5)
  1. DEROXAT [Suspect]
     Indication: DRUG USE FOR UNKNOWN INDICATION
     Dosage: 120MG SINGLE DOSE
     Route: 048
     Dates: start: 20070208, end: 20070208
  2. VALIUM [Suspect]
     Dosage: 1TAB SINGLE DOSE
     Route: 048
     Dates: start: 20070208, end: 20070208
  3. STILNOX [Suspect]
     Dosage: 1TAB SINGLE DOSE
     Route: 048
     Dates: start: 20070208, end: 20070208
  4. ALCOHOL [Suspect]
     Dosage: 1.5L PER DAY
     Route: 048
     Dates: start: 20070208, end: 20070208
  5. ZYPREXA [Concomitant]
     Dosage: 2TAB SINGLE DOSE
     Route: 048
     Dates: start: 20070208, end: 20070208

REACTIONS (2)
  - INTENTIONAL OVERDOSE [None]
  - SUICIDE ATTEMPT [None]
